FAERS Safety Report 9631342 (Version 1)
Quarter: 2013Q4

REPORT INFORMATION
  Report Type: Spontaneous
  Country: US (occurrence: None)
  Receive Date: 20131017
  Receipt Date: 20131017
  Transmission Date: 20140711
  Serious: Yes (Other)
  Sender: FDA-Public Use
  Company Number: None

PATIENT
  Age: 60 Year
  Sex: Male

DRUGS (16)
  1. ICLUSIG [Suspect]
     Indication: CHRONIC MYELOID LEUKAEMIA
     Route: 048
     Dates: start: 20130816
  2. PRILOSEC [Concomitant]
  3. PREDNISONE [Concomitant]
  4. CARVEDILOL [Concomitant]
  5. MAG OXIDE [Concomitant]
  6. OXYCODONE [Concomitant]
  7. BACTRIM [Concomitant]
  8. TRAZODONE [Concomitant]
  9. FLUCONAZOLE [Concomitant]
  10. AMLODIPINE [Concomitant]
  11. URSODIOL [Concomitant]
  12. CYCLOSPORINE [Concomitant]
  13. LOREZEPAM [Concomitant]
  14. ACYCLOVIR [Concomitant]
  15. ACETAMIN [Concomitant]
  16. FLEXERIL [Concomitant]

REACTIONS (1)
  - Pancytopenia [None]
